FAERS Safety Report 10592975 (Version 2)
Quarter: 2014Q4

REPORT INFORMATION
  Report Type: Spontaneous
  Country: US (occurrence: US)
  Receive Date: 20141119
  Receipt Date: 20141125
  Transmission Date: 20150529
  Serious: Yes (Other)
  Sender: FDA-Public Use
  Company Number: US-ELI_LILLY_AND_COMPANY-US201411003056

PATIENT
  Age: 31 Year
  Sex: Female
  Weight: 68.03 kg

DRUGS (2)
  1. PROZAC [Suspect]
     Active Substance: FLUOXETINE HYDROCHLORIDE
     Indication: DEPRESSION
     Dosage: 20 MG, QD
     Route: 065
     Dates: end: 20101222
  2. LEVOTHYROXIN [Concomitant]
     Active Substance: LEVOTHYROXINE

REACTIONS (2)
  - Subchorionic haemorrhage [Recovered/Resolved]
  - Maternal exposure during pregnancy [Recovered/Resolved]

NARRATIVE: CASE EVENT DATE: 201010
